FAERS Safety Report 16928625 (Version 1)
Quarter: 2019Q4

REPORT INFORMATION
  Report Type: Spontaneous
  Country: IT (occurrence: IT)
  Receive Date: 20191017
  Receipt Date: 20191017
  Transmission Date: 20200122
  Serious: Yes (Hospitalization, Other)
  Sender: FDA-Public Use
  Company Number: IT-ACCORD-157934

PATIENT
  Age: 60 Year
  Sex: Male

DRUGS (4)
  1. OXALIPLATIN. [Suspect]
     Active Substance: OXALIPLATIN
     Indication: NON-HODGKIN^S LYMPHOMA
  2. IRINOTECAN [Suspect]
     Active Substance: IRINOTECAN
     Indication: NON-HODGKIN^S LYMPHOMA
  3. FLUOROURACIL. [Suspect]
     Active Substance: FLUOROURACIL
     Indication: NON-HODGKIN^S LYMPHOMA
  4. FOLINIC ACID [Suspect]
     Active Substance: LEUCOVORIN
     Indication: NON-HODGKIN^S LYMPHOMA

REACTIONS (5)
  - Toxicity to various agents [Unknown]
  - Mucosal inflammation [Unknown]
  - Streptococcal bacteraemia [Recovering/Resolving]
  - Pancytopenia [Unknown]
  - Off label use [Unknown]
